FAERS Safety Report 6161735-6 (Version None)
Quarter: 2009Q2

REPORT INFORMATION
  Report Type: 
  Country: None (occurrence: None)
  Receive Date: 20090421
  Receipt Date: 20090409
  Transmission Date: 20091009
  Serious: Yes (Other)
  Sender: FDA-Public Use
  Company Number: US-ROCHE-614011

PATIENT
  Sex: Female

DRUGS (23)
  1. BONIVA [Suspect]
     Indication: OSTEOPOROSIS
     Dosage: DIFFERENT THERAPY DATES PROVIDED
     Route: 065
     Dates: start: 20050801, end: 20070201
  2. FOSAMAX [Suspect]
     Indication: OSTEOPOROSIS
     Dosage: DIFFERENT DATES OF THERAPY PROVIDED
     Route: 065
     Dates: start: 20021201, end: 20050701
  3. ESTRATEST [Concomitant]
     Indication: HORMONE THERAPY
     Dates: start: 20030603, end: 20051225
  4. PREMARIN [Concomitant]
     Indication: HORMONE THERAPY
     Dates: start: 20050908
  5. ESTRADIOL [Concomitant]
     Indication: HORMONE THERAPY
     Dates: start: 20010131
  6. DICYCLOMINE [Concomitant]
     Indication: IRRITABLE BOWEL SYNDROME
     Dates: start: 20010131, end: 20050312
  7. ALPRAZOLAM [Concomitant]
     Indication: ANXIETY
     Dates: start: 20010717, end: 20011010
  8. PAXIL [Concomitant]
     Indication: DEPRESSION
     Dates: start: 20010717, end: 20031101
  9. TRAZODONE [Concomitant]
     Indication: SOMNOLENCE
     Dates: start: 20010920, end: 20041130
  10. EFFEXOR [Concomitant]
     Indication: DEPRESSION
     Dates: start: 20020531, end: 20020701
  11. TEMAZEPAM [Concomitant]
     Indication: ANXIETY
     Dates: start: 20020531, end: 20050101
  12. LEXAPRO [Concomitant]
     Indication: DEPRESSION
     Dates: start: 20031215, end: 20040901
  13. FOLIC ACID [Concomitant]
     Dates: start: 20040224
  14. ULTRACET [Concomitant]
     Indication: PAIN
     Dates: start: 20040510, end: 20050501
  15. SKELAXIN [Concomitant]
     Dates: start: 20040517, end: 20050928
  16. NEURONTIN [Concomitant]
     Dates: start: 20040624, end: 20050701
  17. WARFARIN SODIUM [Concomitant]
     Indication: ANTICOAGULANT THERAPY
     Dates: start: 20040824, end: 20050501
  18. CELEXA [Concomitant]
     Indication: DEPRESSION
     Dates: start: 20040903, end: 20050801
  19. DIAZEPAM [Concomitant]
     Indication: ANXIETY
     Dates: start: 20050315, end: 20050701
  20. TRAMADOL HCL [Concomitant]
     Indication: PAIN
     Dates: start: 20050523
  21. HYDROCODONE BITARTRATE + ACETAMINOPHEN [Concomitant]
     Indication: PAIN
     Dates: start: 20040224
  22. PROPOXYPHENE NAPSYLATE W/ ACETAMINOPHEN [Concomitant]
     Indication: PAIN
     Dates: start: 20010412, end: 20011017
  23. HYDROXYCHLOROQUINE SULFATE [Concomitant]
     Dates: start: 20040224

REACTIONS (5)
  - ANXIETY [None]
  - DEPRESSION [None]
  - ORAL TORUS [None]
  - OSTEONECROSIS [None]
  - STOMATITIS [None]
